FAERS Safety Report 8765575 (Version 1)
Quarter: 2012Q4

REPORT INFORMATION
  Report Type: Report from Study
  Country: IT (occurrence: IT)
  Receive Date: 20120903
  Receipt Date: 20120903
  Transmission Date: 20130627
  Serious: Yes (Other)
  Sender: FDA-Public Use
  Company Number: PHHO2012IT012627

PATIENT
  Age: 78 Year
  Sex: Female
  Weight: 52 kg

DRUGS (5)
  1. AMN107 [Suspect]
     Indication: CHRONIC MYELOID LEUKAEMIA
     Dosage: 200 mg, UNK
     Route: 048
     Dates: start: 20090508, end: 20120623
  2. STI571 [Suspect]
     Indication: CHRONIC MYELOID LEUKAEMIA
     Dosage: 100 mg, UNK
     Route: 048
     Dates: start: 20090808, end: 20120509
  3. METFORMINE [Concomitant]
     Dosage: 500 mg, daily
     Dates: start: 2005
  4. VALSARTAN [Concomitant]
     Dosage: 80 mg, daily
     Dates: start: 2006
  5. ACARBOSE [Concomitant]
     Dosage: 50 mg, daily
     Dates: start: 2005

REACTIONS (1)
  - Coronary artery stenosis [Recovered/Resolved with Sequelae]
